FAERS Safety Report 5447734-8 (Version None)
Quarter: 2007Q3

REPORT INFORMATION
  Report Type: 
  Country: None (occurrence: None)
  Receive Date: 20070910
  Receipt Date: 20070831
  Transmission Date: 20080115
  Serious: Yes (Hospitalization)
  Sender: FDA-Public Use
  Company Number: FR-ELI_LILLY_AND_COMPANY-FR200703004594

PATIENT
  Age: 75 Year
  Sex: Female
  Weight: 40 kg

DRUGS (14)
  1. FORTEO [Suspect]
     Indication: OSTEOPOROSIS
     Dosage: 20 UG, DAILY (1/D)
     Route: 058
     Dates: start: 20070326
  2. FORTEO [Suspect]
     Dosage: 20 UG, DAILY (1/D)
     Route: 058
     Dates: start: 20060804, end: 20070212
  3. TRIATEC [Concomitant]
     Indication: MYOCARDIAL INFARCTION
     Dosage: 5 MG, UNK
     Route: 048
     Dates: start: 20040901
  4. SOTALOL HCL [Concomitant]
     Dosage: 80 MG, UNK
  5. AMLODIPINE BESYLATE [Concomitant]
     Dosage: 5 MG, UNK
  6. KARDEGIC [Concomitant]
     Dosage: 75 MG, UNK
  7. PREVISCAN [Concomitant]
     Dosage: 0.5 D/F, DAILY (1/D)
  8. CARDENSIEL [Concomitant]
     Indication: MYOCARDIAL INFARCTION
     Dosage: 2.5 MG, 2/D
     Route: 048
     Dates: start: 20040901
  9. PLAVIX [Concomitant]
     Indication: MYOCARDIAL INFARCTION
     Dosage: 1 D/F, DAILY (1/D)
     Route: 048
     Dates: start: 20040901
  10. MOPRAL [Concomitant]
     Indication: MYOCARDIAL INFARCTION
     Dosage: 20 MG, DAILY (1/D)
     Route: 048
     Dates: start: 20040901
  11. LASIX [Concomitant]
     Indication: MYOCARDIAL INFARCTION
     Dosage: 40 MG, DAILY (1/D)
     Route: 048
     Dates: start: 20040901
  12. TAHOR [Concomitant]
     Indication: HYPERCHOLESTEROLAEMIA
     Dosage: 10 MG, DAILY (1/D)
     Route: 048
     Dates: start: 20040901
  13. OSTRAM [Concomitant]
     Indication: OSTEOPOROSIS
     Dosage: 0.6 G, DAILY (1/D)
     Route: 048
     Dates: start: 19990101
  14. STEROGYL [Concomitant]
     Indication: OSTEOPOROSIS
     Dosage: 1200 IU, DAILY (1/D)
     Route: 048
     Dates: start: 19990101

REACTIONS (2)
  - ARRHYTHMIA [None]
  - POST PROCEDURAL HAEMATOMA [None]
